FAERS Safety Report 4473332-9 (Version None)
Quarter: 2004Q3

REPORT INFORMATION
  Report Type: 
  Country: None (occurrence: None)
  Receive Date: 20040917
  Receipt Date: 20040712
  Transmission Date: 20050211
  Serious: No
  Sender: FDA-Public Use
  Company Number: US-JNJFOC-20040704294

PATIENT
  Age: 41 Year
  Sex: Female
  Weight: 60.3284 kg

DRUGS (1)
  1. ORTHO EVRA [Suspect]
     Indication: MENSTRUAL DISORDER
     Dosage: 1 DOSE(S) 3 IN 4 WEEK, TRANSDERMAL
     Route: 062
     Dates: start: 20040627

REACTIONS (6)
  - ABDOMINAL DISTENSION [None]
  - BREAST TENDERNESS [None]
  - FATIGUE [None]
  - OEDEMA [None]
  - TENDERNESS [None]
  - WEIGHT INCREASED [None]
